FAERS Safety Report 15154895 (Version 1)
Quarter: 2018Q3

REPORT INFORMATION
  Report Type: Spontaneous
  Country: CO (occurrence: CO)
  Receive Date: 20180717
  Receipt Date: 20180717
  Transmission Date: 20181010
  Serious: Yes (Life-Threatening)
  Sender: FDA-Public Use
  Company Number: CO-NAPPMUNDI-GBR-2018-0057216

PATIENT
  Age: 16 Year
  Sex: Female

DRUGS (2)
  1. OXYCODONE HYDROCHLORIDE. [Suspect]
     Active Substance: OXYCODONE HYDROCHLORIDE
     Indication: PAIN
     Dosage: 1 MG, UNK  (STRENGHT 10MG/ML)
     Route: 042
     Dates: start: 20180416
  2. OXYCODONE HYDROCHLORIDE. [Suspect]
     Active Substance: OXYCODONE HYDROCHLORIDE
     Dosage: UNK (STRENGHT 10MG/ML)
     Route: 042
     Dates: start: 20180410, end: 20180416

REACTIONS (4)
  - Haematemesis [Unknown]
  - Cyanosis [Recovering/Resolving]
  - Drug administered to patient of inappropriate age [Unknown]
  - Pulse absent [Recovering/Resolving]

NARRATIVE: CASE EVENT DATE: 20180410
